FAERS Safety Report 6317962-8 (Version None)
Quarter: 2009Q3

REPORT INFORMATION
  Report Type: 
  Country: None (occurrence: None)
  Receive Date: 20090821
  Receipt Date: 20090812
  Transmission Date: 20100115
  Serious: Yes (Hospitalization)
  Sender: FDA-Public Use
  Company Number: CA-JNJFOC-20090803956

PATIENT
  Sex: Male
  Weight: 88 kg

DRUGS (4)
  1. REMICADE [Suspect]
     Route: 042
  2. REMICADE [Suspect]
     Indication: RHEUMATOID ARTHRITIS
     Dosage: WEEKS 0, 2, 6, THEN EVERY 8 WEEKS.
     Route: 042
  3. PLAQUENIL [Concomitant]
  4. METHOTREXATE [Concomitant]

REACTIONS (2)
  - APPENDICECTOMY [None]
  - HERNIA [None]
